FAERS Safety Report 4624227-9 (Version None)
Quarter: 2005Q1

REPORT INFORMATION
  Report Type: 
  Country: None (occurrence: None)
  Receive Date: 20050330
  Receipt Date: 20050330
  Transmission Date: 20050727
  Serious: Yes (Other)
  Sender: FDA-Public Use
  Company Number: None

PATIENT
  Sex: Female
  Weight: 45.3597 kg

DRUGS (7)
  1. BETIMOL [Suspect]
     Indication: GLAUCOMA
     Dosage: 1 GTT OU BID (AM + PM) ABOUT 4 WEEKS ENDING ON 3/9/05
     Route: 047
     Dates: end: 20050309
  2. NEXIUM [Concomitant]
  3. ACTONEL [Concomitant]
  4. M.V.I. [Concomitant]
  5. VITAMIN C [Concomitant]
  6. CALCIUM GLUCONATE [Concomitant]
  7. BETA CAROTENE [Concomitant]

REACTIONS (1)
  - HEART RATE INCREASED [None]
